FAERS Safety Report 24450906 (Version 2)
Quarter: 2024Q4

REPORT INFORMATION
  Report Type: Spontaneous
  Country: CN (occurrence: CN)
  Receive Date: 20241017
  Receipt Date: 20241025
  Transmission Date: 20250114
  Serious: Yes (Death, Hospitalization, Other)
  Sender: DR REDDYS
  Company Number: CN-RDY-LIT/CHN/24/0015492

PATIENT
  Age: 71 Year
  Sex: Male

DRUGS (7)
  1. ABIRATERONE [Suspect]
     Active Substance: ABIRATERONE\ABIRATERONE ACETATE
     Indication: Prostate cancer
     Dosage: 1,000 MG, ORALLY ADMINISTERED, DAILY
     Route: 048
  2. GOSERELIN [Suspect]
     Active Substance: GOSERELIN
     Indication: Prostate cancer
     Dosage: 10.8 MG, SUBCUTANEOUS INJECTION, ONCE EVERY 12 WEEKS
     Route: 058
  3. PREDNISONE [Suspect]
     Active Substance: PREDNISONE
     Indication: Prostate cancer
     Dosage: 5 MG, ORALLY ADMINISTERED, TWICE A DAY
     Route: 048
  4. DOCETAXEL [Suspect]
     Active Substance: DOCETAXEL
     Indication: Prostate cancer
     Dosage: 120 MG, INTRAVENOUSLY, EVERY 3 WEEKS
     Route: 042
  5. RIVAROXABAN [Suspect]
     Active Substance: RIVAROXABAN
     Indication: Anticoagulant therapy
     Dosage: 20 MG, ORALLY ADMINISTERED, ONCE DAILY
     Route: 048
  6. BICALUTAMIDE [Suspect]
     Active Substance: BICALUTAMIDE
     Indication: Prostate cancer
     Dosage: 50 MG, ORALLY ADMINISTERED, DAILY
     Route: 048
  7. ABIRATERONE [Suspect]
     Active Substance: ABIRATERONE\ABIRATERONE ACETATE
     Indication: Prostate cancer
     Dosage: SUSPECT ABIRATERONE IS NOT A DRL PRODUCT
     Route: 048

REACTIONS (8)
  - Circulatory collapse [Fatal]
  - Pneumonia [Fatal]
  - Cardiac failure [Fatal]
  - Inferior vena cava syndrome [Fatal]
  - Peripheral swelling [Unknown]
  - Lymphadenopathy [Unknown]
  - Malignant neoplasm progression [Unknown]
  - Drug ineffective [Unknown]
